FAERS Safety Report 6290764-7 (Version None)
Quarter: 2009Q3

REPORT INFORMATION
  Report Type: 
  Country: None (occurrence: None)
  Receive Date: 20090730
  Receipt Date: 20090717
  Transmission Date: 20100115
  Serious: Yes (Hospitalization)
  Sender: FDA-Public Use
  Company Number: PHHY2009BR29833

PATIENT
  Sex: Male
  Weight: 74 kg

DRUGS (1)
  1. EXFORGE [Suspect]
     Indication: BLOOD PRESSURE
     Dosage: 1 TABLET / DAY
     Route: 048
     Dates: start: 20090401

REACTIONS (2)
  - HERNIA REPAIR [None]
  - OEDEMA PERIPHERAL [None]
